FAERS Safety Report 25497391 (Version 1)
Quarter: 2025Q3

REPORT INFORMATION
  Report Type: Spontaneous
  Country: US (occurrence: US)
  Receive Date: 20250701
  Receipt Date: 20250701
  Transmission Date: 20251020
  Serious: No
  Sender: RANBAXY
  Company Number: US-MIMS-SUN-2025-USA-53211

PATIENT
  Sex: Male
  Weight: 83.9 kg

DRUGS (1)
  1. IVERMECTIN [Suspect]
     Active Substance: IVERMECTIN
     Indication: Lice infestation
     Dosage: UNK UNK, DAILY
     Route: 061
     Dates: start: 20250404

REACTIONS (2)
  - Burning sensation [Not Recovered/Not Resolved]
  - Application site discolouration [Not Recovered/Not Resolved]
